FAERS Safety Report 14909201 (Version 3)
Quarter: 2022Q2

REPORT INFORMATION
  Report Type: Spontaneous
  Country: US (occurrence: US)
  Receive Date: 20180517
  Receipt Date: 20220411
  Transmission Date: 20220721
  Serious: Yes (Hospitalization, Other)
  Sender: FDA-Public Use
  Company Number: US-SAOL THERAPEUTICS-2018SAO00734

PATIENT
  Sex: Male

DRUGS (7)
  1. BACLOFEN [Suspect]
     Active Substance: BACLOFEN
     Indication: Spinal pain
     Route: 037
  2. CLONIDINE [Suspect]
     Active Substance: CLONIDINE
     Route: 037
  3. BUPIVACAINE [Suspect]
     Active Substance: BUPIVACAINE
     Route: 037
  4. MORPHINE [Suspect]
     Active Substance: MORPHINE
     Route: 037
  5. LYRICA [Suspect]
     Active Substance: PREGABALIN
  6. NORCO [Concomitant]
     Active Substance: ACETAMINOPHEN\HYDROCODONE BITARTRATE
     Dosage: UNK, 1X/DAY
     Route: 048
  7. UNIDENTIFIED MUSCLE RELAXER [Concomitant]
     Dosage: 1/2, 1X/DAY
     Route: 048

REACTIONS (16)
  - Implant site swelling [Unknown]
  - Malaise [Unknown]
  - Drug withdrawal syndrome [Unknown]
  - Burning sensation [Unknown]
  - Blood pressure increased [Unknown]
  - Heart rate increased [Unknown]
  - Parosmia [Unknown]
  - Retching [Unknown]
  - Nightmare [Unknown]
  - Phobia [Unknown]
  - Atrial fibrillation [Unknown]
  - Panic attack [Unknown]
  - Anxiety [Unknown]
  - Device malfunction [Unknown]
  - Device physical property issue [Unknown]
  - Off label use [Unknown]

NARRATIVE: CASE EVENT DATE: 20130101
